FAERS Safety Report 4519871-3 (Version None)
Quarter: 2004Q4

REPORT INFORMATION
  Report Type: 
  Country: None (occurrence: None)
  Receive Date: 20041202
  Receipt Date: 20041202
  Transmission Date: 20050328
  Serious: Yes (Hospitalization)
  Sender: FDA-Public Use
  Company Number: None

PATIENT
  Age: 88 Year
  Sex: Female
  Weight: 63.7 kg

DRUGS (2)
  1. ASPIRIN [Suspect]
     Indication: CORONARY ARTERY DISEASE
     Dosage: 81MG  DAILY ORAL
     Route: 048
  2. CELECOXIB  200MG   PFIZER [Suspect]
     Indication: ARTHRITIS
     Dosage: 200MG DAILY ORAL
     Route: 048

REACTIONS (4)
  - FAECES DISCOLOURED [None]
  - HAEMOGLOBIN DECREASED [None]
  - RECTAL HAEMORRHAGE [None]
  - SYNCOPE [None]
